FAERS Safety Report 6432165-4 (Version None)
Quarter: 2009Q4

REPORT INFORMATION
  Report Type: 
  Country: None (occurrence: None)
  Receive Date: 20091105
  Receipt Date: 20091027
  Transmission Date: 20100525
  Serious: Yes (Other)
  Sender: FDA-Public Use
  Company Number: 232353J09USA

PATIENT
  Age: 45 Year
  Sex: Male

DRUGS (4)
  1. REBIF [Suspect]
     Indication: MULTIPLE SCLEROSIS
     Dosage: 44 MCG, 3 IN 1 WEEKS, SUBCUTANEOUS
     Route: 058
     Dates: start: 20070401
  2. ZOLOFT [Concomitant]
  3. LORAZEPAM [Concomitant]
  4. UNSPECIFIED MEDICATION (OTHER CHOLESTEROL AND TRIGLYCERIDE REDUCERS) [Concomitant]

REACTIONS (2)
  - DIABETES MELLITUS [None]
  - DIZZINESS [None]
